FAERS Safety Report 20383295 (Version 4)
Quarter: 2022Q1

REPORT INFORMATION
  Report Type: Spontaneous
  Country: JM (occurrence: JM)
  Receive Date: 20220127
  Receipt Date: 20220303
  Transmission Date: 20220424
  Serious: Yes (Death)
  Sender: FDA-Public Use
  Company Number: JM-NOVARTISPH-NVSC2022JM017155

PATIENT
  Age: 89 Year
  Sex: Female
  Weight: 54 kg

DRUGS (2)
  1. GLIVEC [Suspect]
     Active Substance: IMATINIB MESYLATE
     Indication: Chronic myeloid leukaemia
     Dosage: 300 MG, QD (300 MG (3 X 100 MG TABLETS))
     Route: 048
     Dates: start: 20190824, end: 20200122
  2. ALDACTONE [Concomitant]
     Active Substance: SPIRONOLACTONE
     Indication: Product used for unknown indication
     Dosage: UNK
     Route: 065

REACTIONS (10)
  - Hypercapnia [Fatal]
  - Chronic respiratory disease [Fatal]
  - Respiratory failure [Fatal]
  - Hypovolaemia [Unknown]
  - Dissociative identity disorder [Unknown]
  - Platelet count abnormal [Unknown]
  - Blood bicarbonate increased [Unknown]
  - Blood urea increased [Unknown]
  - Blood lactate dehydrogenase increased [Unknown]
  - Blood potassium increased [Unknown]

NARRATIVE: CASE EVENT DATE: 20211112
